FAERS Safety Report 7107671-X (Version None)
Quarter: 2010Q4

REPORT INFORMATION
  Report Type: 
  Country: None (occurrence: None)
  Receive Date: 20101117
  Receipt Date: 20101108
  Transmission Date: 20110411
  Serious: Yes (Hospitalization)
  Sender: FDA-Public Use
  Company Number: AT-ASTRAZENECA-2010SE28573

PATIENT
  Age: 49 Year
  Sex: Male

DRUGS (2)
  1. ZOMIG [Suspect]
     Indication: CLUSTER HEADACHE
     Route: 045
     Dates: start: 20100601, end: 20100615
  2. SOLU DACORTIN [Suspect]
     Indication: CLUSTER HEADACHE
     Route: 042
     Dates: start: 20100611, end: 20100611

REACTIONS (2)
  - PANCREATIC PSEUDOCYST [None]
  - PANCREATITIS [None]
